FAERS Safety Report 4385584-4 (Version None)
Quarter: 2004Q2

REPORT INFORMATION
  Report Type: 
  Country: None (occurrence: None)
  Receive Date: 20040622
  Receipt Date: 20040608
  Transmission Date: 20050107
  Serious: Yes (Hospitalization)
  Sender: FDA-Public Use
  Company Number: 03P-150-0223726-00

PATIENT
  Age: 62 Year
  Sex: Male

DRUGS (10)
  1. HUMIRA [Suspect]
     Indication: RHEUMATOID ARTHRITIS
     Dosage: 40 MG, SUBCUTANEOUS
     Route: 058
     Dates: start: 20030611, end: 20030625
  2. LEKOVIT CA [Concomitant]
  3. SALURES-K MITE [Concomitant]
  4. LOSARTAN POTASSIUM [Concomitant]
  5. PREDNISOLONE [Concomitant]
  6. AZATHIOPRINE [Concomitant]
  7. ORUDIS RETARD [Concomitant]
  8. ALENDRONATE SODIUM [Concomitant]
  9. ACETAMINOPHEN [Concomitant]
  10. TRAMADOL [Concomitant]

REACTIONS (6)
  - CEREBELLAR HAEMORRHAGE [None]
  - CEREBRAL HAEMORRHAGE [None]
  - DIPLOPIA [None]
  - DIZZINESS [None]
  - HEADACHE [None]
  - NAUSEA [None]
